FAERS Safety Report 15570886 (Version 3)
Quarter: 2019Q2

REPORT INFORMATION
  Report Type: Spontaneous
  Country: FR (occurrence: FR)
  Receive Date: 20181031
  Receipt Date: 20190417
  Transmission Date: 20190711
  Serious: Yes (Other)
  Sender: FDA-Public Use
  Company Number: FR-PFIZER INC-2018439153

PATIENT
  Age: 33 Year
  Sex: Male
  Weight: 65 kg

DRUGS (7)
  1. ZYVOXID [Suspect]
     Active Substance: LINEZOLID
     Indication: OSTEOMYELITIS
     Dosage: 1200 MG, 1X/DAY
     Route: 042
     Dates: start: 20180830, end: 20180831
  2. OXYCODONE [Concomitant]
     Active Substance: OXYCODONE
     Dosage: UNK
  3. TRAMADOL. [Concomitant]
     Active Substance: TRAMADOL
     Dosage: UNK
  4. PARACETAMOL [Concomitant]
     Active Substance: ACETAMINOPHEN
     Dosage: UNK
  5. NEFOPAM HYDROCHLORIDE [Concomitant]
     Active Substance: NEFOPAM HYDROCHLORIDE
     Dosage: UNK
  6. LINEZOLIDE KABI [Suspect]
     Active Substance: LINEZOLID
     Indication: OSTEOMYELITIS
     Dosage: 1200 MG, 1X/DAY
     Route: 048
     Dates: start: 20180831, end: 20180903
  7. PIPERACILLIN AND TAZOBACTAM [Suspect]
     Active Substance: PIPERACILLIN SODIUM\TAZOBACTAM SODIUM
     Indication: OSTEOMYELITIS
     Dosage: 12 G, 1X/DAY
     Route: 042
     Dates: start: 20180830, end: 20180903

REACTIONS (1)
  - Hepatocellular injury [Recovering/Resolving]

NARRATIVE: CASE EVENT DATE: 20180903
